FAERS Safety Report 23251393 (Version 2)
Quarter: 2025Q1

REPORT INFORMATION
  Report Type: Report from Study
  Country: US (occurrence: None)
  Receive Date: 20231201
  Receipt Date: 20250304
  Transmission Date: 20250409
  Serious: No
  Sender: INCYTE
  Company Number: US-INCYTE CORPORATION-2023IN011620

PATIENT
  Age: 63 Year

DRUGS (2)
  1. JAKAFI [Suspect]
     Active Substance: RUXOLITINIB
     Indication: Essential thrombocythaemia
     Dosage: 25 MILLIGRAM, BID
  2. JAKAFI [Suspect]
     Active Substance: RUXOLITINIB
     Dosage: 25 MILLIGRAM, BID

REACTIONS (4)
  - Contusion [Unknown]
  - Off label use [Unknown]
  - Scratch [Unknown]
  - Condition aggravated [Unknown]
